FAERS Safety Report 14339747 (Version 3)
Quarter: 2018Q4

REPORT INFORMATION
  Report Type: Report from Study
  Country: BR (occurrence: BR)
  Receive Date: 20171230
  Receipt Date: 20181225
  Transmission Date: 20190204
  Serious: Yes (Other)
  Sender: FDA-Public Use
  Company Number: PHHY2017BR191628

PATIENT
  Sex: Female
  Weight: 84 kg

DRUGS (3)
  1. FUROSEMIDE. [Concomitant]
     Active Substance: FUROSEMIDE
     Indication: PRODUCT USED FOR UNKNOWN INDICATION
     Dosage: 1 DF, QD
     Route: 048
  2. SANDOSTATIN LAR DEPOT [Suspect]
     Active Substance: OCTREOTIDE ACETATE
     Indication: PITUITARY TUMOUR
     Dosage: 20 MG, QMO (EVERY 28 DAYS)
     Route: 030
     Dates: start: 20181128
  3. SANDOSTATIN LAR DEPOT [Suspect]
     Active Substance: OCTREOTIDE ACETATE
     Indication: ACROMEGALY
     Dosage: 30 MG, QMO (EVERY 28 DAYS)
     Route: 030
     Dates: start: 2016

REACTIONS (16)
  - Lung neoplasm malignant [Unknown]
  - Blood pressure decreased [Recovering/Resolving]
  - Diabetes mellitus [Unknown]
  - Conjunctivitis [Not Recovered/Not Resolved]
  - Back pain [Not Recovered/Not Resolved]
  - Asthenia [Recovering/Resolving]
  - Cardiac disorder [Unknown]
  - Visual impairment [Not Recovered/Not Resolved]
  - Memory impairment [Not Recovered/Not Resolved]
  - Ovarian cancer [Unknown]
  - Weight decreased [Unknown]
  - Diarrhoea haemorrhagic [Recovering/Resolving]
  - Recurrent cancer [Unknown]
  - Malaise [Recovering/Resolving]
  - Colitis [Recovering/Resolving]
  - Peritoneal carcinoma metastatic [Unknown]
